FAERS Safety Report 18902197 (Version 3)
Quarter: 2021Q1

REPORT INFORMATION
  Report Type: Spontaneous
  Country: JP (occurrence: JP)
  Receive Date: 20210216
  Receipt Date: 20210319
  Transmission Date: 20210420
  Serious: Yes (Other)
  Sender: FDA-Public Use
  Company Number: JP-OTSUKA-2021_004311

PATIENT
  Age: 62 Year
  Sex: Male

DRUGS (1)
  1. SAMSCA [Suspect]
     Active Substance: TOLVAPTAN
     Indication: CONGENITAL CYSTIC KIDNEY DISEASE
     Dosage: 120,  DAILY DOSE
     Route: 048

REACTIONS (3)
  - Cardiac failure [Unknown]
  - Renal impairment [Recovered/Resolved]
  - Off label use [Unknown]
